FAERS Safety Report 4335932-6 (Version None)
Quarter: 2004Q2

REPORT INFORMATION
  Report Type: 
  Country: None (occurrence: None)
  Receive Date: 20040406
  Receipt Date: 20040322
  Transmission Date: 20050107
  Serious: Yes (Other)
  Sender: FDA-Public Use
  Company Number: S04-GER-00950-01

PATIENT
  Age: 57 Year
  Sex: Male

DRUGS (6)
  1. CIPRALEX (ESCITALOPRAM) [Suspect]
     Indication: DEPRESSION
     Dosage: 10 MG QD PO
     Route: 048
     Dates: start: 20031204, end: 20040217
  2. CIPLALEX (ESCITALOPRAM) [Suspect]
     Indication: DEPRESSION
     Dosage: 20 MG QD PO
     Route: 048
     Dates: start: 20031204, end: 20040217
  3. CIPRALEX (ESCITALOPRAM) [Suspect]
     Indication: DEPRESSION
     Dosage: 10 MG QD PO
     Route: 048
     Dates: start: 20040217, end: 20040302
  4. ALLOPURINOL [Suspect]
     Dosage: 300 MG OD
     Dates: end: 20031201
  5. ALLOPURINOL [Suspect]
     Dosage: 300 MG QD
     Dates: start: 20040201
  6. CAPTOPRIL [Suspect]
     Dosage: 100 MG QD

REACTIONS (6)
  - DEPRESSION [None]
  - DRUG EFFECT DECREASED [None]
  - ERECTILE DYSFUNCTION [None]
  - LEUKOPENIA [None]
  - NEUTROPENIA [None]
  - SOMNOLENCE [None]
